FAERS Safety Report 16963599 (Version 2)
Quarter: 2020Q2

REPORT INFORMATION
  Report Type: Other
  Country: FR (occurrence: FR)
  Receive Date: 20191025
  Receipt Date: 20200408
  Transmission Date: 20200713
  Serious: Yes (Hospitalization)
  Sender: FDA-Public Use
  Company Number: FR-GE HEALTHCARE LIFE SCIENCES-2019CSU001720

PATIENT

DRUGS (3)
  1. VISIPAQUE [Suspect]
     Active Substance: IODIXANOL
     Indication: IMAGING PROCEDURE
     Dosage: 320 MG, SINGLE
     Route: 065
     Dates: start: 20190212, end: 20190212
  2. VISIPAQUE [Suspect]
     Active Substance: IODIXANOL
     Indication: ANEURYSM REPAIR
  3. NIMOTOP [Concomitant]
     Active Substance: NIMODIPINE
     Indication: ANEURYSM REPAIR
     Dosage: UNK
     Dates: start: 20190212, end: 20190212

REACTIONS (3)
  - Pruritus [Recovered/Resolved]
  - Product prescribing error [Recovered/Resolved]
  - Rash erythematous [Recovered/Resolved]

NARRATIVE: CASE EVENT DATE: 20190212
